FAERS Safety Report 19692033 (Version 7)
Quarter: 2022Q1

REPORT INFORMATION
  Report Type: Report from Study
  Country: JP (occurrence: JP)
  Receive Date: 20210812
  Receipt Date: 20220222
  Transmission Date: 20220423
  Serious: Yes (Hospitalization)
  Sender: FDA-Public Use
  Company Number: JP-JCAR017-FOL-001-5531003-20210805-0001SG

PATIENT
  Age: 65 Year
  Sex: Male
  Weight: 76 kg

DRUGS (34)
  1. LISOCABTAGENE MARALEUCEL [Suspect]
     Active Substance: LISOCABTAGENE MARALEUCEL
     Indication: Follicular lymphoma
     Dosage: 100 X 10^6 CAR+ T CELLS X ONCE
     Route: 042
     Dates: start: 20210707, end: 20210707
  2. CYCLOPHOSPHAMIDE [Suspect]
     Active Substance: CYCLOPHOSPHAMIDE
     Indication: Follicular lymphoma
     Dosage: 560 MG X 1 X 1 DAYS
     Route: 042
     Dates: start: 20210702, end: 20210702
  3. CYCLOPHOSPHAMIDE [Suspect]
     Active Substance: CYCLOPHOSPHAMIDE
     Dosage: 560 MG X 1 X 1 DAYS
     Route: 042
     Dates: start: 20210703, end: 20210703
  4. CYCLOPHOSPHAMIDE [Suspect]
     Active Substance: CYCLOPHOSPHAMIDE
     Dosage: 560 MG X 1 X 1 DAYS
     Route: 042
     Dates: start: 20210704, end: 20210704
  5. FLUDARABINE [Suspect]
     Active Substance: FLUDARABINE PHOSPHATE
     Indication: Follicular lymphoma
     Dosage: 56 MG X 1 X 1 DAYS
     Route: 042
     Dates: start: 20210702, end: 20210702
  6. FLUDARABINE [Suspect]
     Active Substance: FLUDARABINE PHOSPHATE
     Dosage: 56 MG X 1 X 1 DAYS
     Route: 042
     Dates: start: 20210703, end: 20210703
  7. FLUDARABINE [Suspect]
     Active Substance: FLUDARABINE PHOSPHATE
     Dosage: 56 MG X 1 X 1 DAYS
     Route: 042
     Dates: start: 20210704, end: 20210704
  8. FILGRASTIM [Suspect]
     Active Substance: FILGRASTIM
     Indication: Product used for unknown indication
     Dosage: 75 UG X 1 X 1 DAYS
     Route: 058
     Dates: start: 20210720, end: 20210723
  9. FILGRASTIM [Suspect]
     Active Substance: FILGRASTIM
     Indication: Neutrophil count decreased
  10. LEVETIRACETAM [Suspect]
     Active Substance: LEVETIRACETAM
     Indication: Prophylaxis
     Dosage: 500 MG X 2 X 1 DAYS
     Route: 048
     Dates: start: 20210702, end: 20210728
  11. AMLODIPINE BESYLATE [Concomitant]
     Active Substance: AMLODIPINE BESYLATE
     Indication: Hypertension
     Dosage: 7.5 MG X 1 X 1 DAYS
     Route: 048
     Dates: start: 1997, end: 20210710
  12. ATENOLOL [Concomitant]
     Active Substance: ATENOLOL
     Indication: Hypertension
     Dosage: 50 MG X 1 X 1 DAYS
     Route: 048
     Dates: start: 1997, end: 20210712
  13. ENTECAVIR HYDRATE [Concomitant]
     Indication: Prophylaxis
     Dosage: 0.5 MG X 1 X 1 DAYS
     Route: 048
     Dates: start: 201806
  14. FEBUXOSTAT [Concomitant]
     Active Substance: FEBUXOSTAT
     Indication: Prophylaxis
     Dosage: 20 MG X 1 X 1 DAYS
     Route: 048
     Dates: start: 201806
  15. LANSOPRAZOLE [Concomitant]
     Active Substance: LANSOPRAZOLE
     Indication: Prophylaxis
     Dosage: 30 MG X 1 X 1 DAYS
     Route: 048
     Dates: start: 201806, end: 20210630
  16. LANSOPRAZOLE [Concomitant]
     Active Substance: LANSOPRAZOLE
     Dosage: 15 MG X 1 X 1 DAYS
     Route: 048
     Dates: start: 20210701
  17. TELMISARTAN [Concomitant]
     Active Substance: TELMISARTAN
     Indication: Hypertension
     Dosage: 40 MG X 1 X 1 DAYS
     Route: 048
     Dates: start: 1997
  18. URSODIOL [Concomitant]
     Active Substance: URSODIOL
     Indication: Hepatic function abnormal
     Dosage: 100 MG X 3 X 1 DAYS
     Route: 048
     Dates: start: 202103
  19. ACYCLOVIR [Concomitant]
     Active Substance: ACYCLOVIR
     Indication: Prophylaxis
     Dosage: 200 MG X 1 X 1 DAYS
     Route: 048
     Dates: start: 20210513
  20. APREPITANT [Concomitant]
     Active Substance: APREPITANT
     Indication: Prophylaxis
     Dosage: 125 MG X 1 X 1 DAYS
     Route: 048
     Dates: start: 20210702, end: 20210702
  21. APREPITANT [Concomitant]
     Active Substance: APREPITANT
     Dosage: 80 MG X 1 X 1 DAYS
     Route: 048
     Dates: start: 20210703, end: 20210704
  22. CEFEPIME [Concomitant]
     Active Substance: CEFEPIME HYDROCHLORIDE
     Indication: Prophylaxis
     Dosage: 2 G X 2 X 1 DAYS
     Route: 042
     Dates: start: 20210723, end: 20210729
  23. FLUCONAZOLE [Concomitant]
     Active Substance: FLUCONAZOLE
     Indication: Prophylaxis
     Dosage: 100 MG X 1 X 1 DAYS
     Route: 048
     Dates: start: 20210513, end: 20210630
  24. FLUCONAZOLE [Concomitant]
     Active Substance: FLUCONAZOLE
     Dosage: 200 MG X 1 X 1 DAYS
     Route: 048
     Dates: start: 20210717, end: 20210728
  25. FLUCONAZOLE [Concomitant]
     Active Substance: FLUCONAZOLE
     Dosage: 100 MG X 1 X 1 DAYS
     Route: 048
     Dates: start: 20210809
  26. GRANISETRON HYDROCHLORIDE [Concomitant]
     Active Substance: GRANISETRON HYDROCHLORIDE
     Indication: Prophylaxis
     Dosage: 3 MG X 1 X 1 DAYS
     Route: 042
     Dates: start: 20210702, end: 20210704
  27. KN NO.1 INJECTION [Concomitant]
     Indication: Fluid replacement
     Dosage: 500 ML X 1 X 1 DAYS
     Route: 042
     Dates: start: 20210702, end: 20210705
  28. LEVOFLOXACIN HEMIHYDRATE [Concomitant]
     Active Substance: LEVOFLOXACIN
     Indication: Prophylaxis
     Dosage: 500 MG X 1 X 1 DAYS
     Route: 048
     Dates: start: 20210702, end: 20210723
  29. LEVOFLOXACIN HEMIHYDRATE [Concomitant]
     Active Substance: LEVOFLOXACIN
     Dosage: 500 MG X 1 X 1 DAYS
     Route: 048
     Dates: start: 20210809
  30. MICAFUNGIN SODIUM [Concomitant]
     Active Substance: MICAFUNGIN SODIUM
     Indication: Prophylaxis
     Dosage: 50 MG X 1 X 1 DAYS
     Route: 042
     Dates: start: 20210702, end: 20210716
  31. SODIUM CHLORIDE [Concomitant]
     Active Substance: SODIUM CHLORIDE
     Indication: Fluid replacement
     Dosage: 1000 ML X 1 X 1 DAYS
     Route: 042
     Dates: start: 20210702, end: 20210704
  32. SODIUM CHLORIDE [Concomitant]
     Active Substance: SODIUM CHLORIDE
     Indication: Adverse event
     Dosage: 1000 ML X 1 X 1 DAYS
     Route: 042
     Dates: start: 20210728, end: 20210729
  33. SULFAMETHOXAZOLETRIMETHOPRIM [Concomitant]
     Indication: Prophylaxis
     Dosage: 1 TABLET X 1 X 1 DAYS
     Route: 048
     Dates: start: 20210517, end: 20210630
  34. YD SOLITA-T NO.3 [Concomitant]
     Indication: Fluid replacement
     Dosage: 500 ML X 1 X 1 DAYS
     Route: 042
     Dates: start: 20210701, end: 20210708

REACTIONS (1)
  - Rhabdomyolysis [Recovered/Resolved]

NARRATIVE: CASE EVENT DATE: 20210728
